FAERS Safety Report 14192570 (Version 1)
Quarter: 2017Q4

REPORT INFORMATION
  Report Type: Spontaneous
  Country: US (occurrence: US)
  Receive Date: 20171115
  Receipt Date: 20171115
  Transmission Date: 20180321
  Serious: No
  Sender: FDA-Public Use
  Company Number: US-ALLERGAN-2017-000340

PATIENT
  Age: 21 Year
  Sex: Female

DRUGS (1)
  1. LO LOESTRIN FE [Suspect]
     Active Substance: ETHINYL ESTRADIOL\NORETHINDRONE ACETATE
     Indication: CONTRACEPTION
     Dosage: UNKNOWN
     Route: 048
     Dates: start: 201701, end: 201701

REACTIONS (2)
  - Metrorrhagia [Recovered/Resolved]
  - Menorrhagia [Recovered/Resolved]
